FAERS Safety Report 14921032 (Version 1)
Quarter: 2018Q2

REPORT INFORMATION
  Report Type: Spontaneous
  Country: US (occurrence: US)
  Receive Date: 20180521
  Receipt Date: 20180521
  Transmission Date: 20180711
  Serious: No
  Sender: FDA-Public Use
  Company Number: US-PFIZER INC-2018201457

PATIENT
  Age: 38 Year
  Sex: Male

DRUGS (4)
  1. DILANTIN [Suspect]
     Active Substance: PHENYTOIN
     Dosage: UNK UNK, DAILY
  2. ONFI [Suspect]
     Active Substance: CLOBAZAM
     Dosage: 5 MG, DAILY [5 MG IN THE MORNING]
     Route: 048
  3. ONFI [Suspect]
     Active Substance: CLOBAZAM
     Indication: LENNOX-GASTAUT SYNDROME
     Dosage: 20 MG, DAILY
     Route: 048
     Dates: start: 201612
  4. ONFI [Suspect]
     Active Substance: CLOBAZAM
     Dosage: 10 MG, DAILY  [10 MG AT BEDTIME]
     Route: 048

REACTIONS (3)
  - Cold-stimulus headache [Unknown]
  - Anxiety [Unknown]
  - Road traffic accident [Unknown]
